FAERS Safety Report 14667109 (Version 2)
Quarter: 2018Q1

REPORT INFORMATION
  Report Type: Spontaneous
  Country: AT (occurrence: AT)
  Receive Date: 20180322
  Receipt Date: 20180328
  Transmission Date: 20180509
  Serious: Yes (Other)
  Sender: FDA-Public Use
  Company Number: AT-MERCK KGAA-2044272

PATIENT
  Age: 58 Year
  Sex: Male
  Weight: 90 kg

DRUGS (3)
  1. NOVOTHYROX [Suspect]
     Active Substance: LEVOTHYROXINE SODIUM
     Indication: AUTOIMMUNE THYROIDITIS
  2. MEFENAM [Suspect]
     Active Substance: MEFENAMIC ACID
     Route: 048
     Dates: start: 20180210, end: 20180216
  3. MEFENAM [Suspect]
     Active Substance: MEFENAMIC ACID
     Dates: start: 20180217, end: 20180217

REACTIONS (4)
  - Thyroid disorder [Recovered/Resolved]
  - Dyspnoea [Recovered/Resolved]
  - Cardiovascular symptom [Recovered/Resolved]
  - Bronchospasm [Recovered/Resolved]

NARRATIVE: CASE EVENT DATE: 20180210
